APPROVED DRUG PRODUCT: IRBESARTAN AND HYDROCHLOROTHIAZIDE
Active Ingredient: HYDROCHLOROTHIAZIDE; IRBESARTAN
Strength: 12.5MG;150MG
Dosage Form/Route: TABLET;ORAL
Application: A077369 | Product #001 | TE Code: AB
Applicant: TEVA PHARMACEUTICALS USA INC
Approved: Mar 30, 2012 | RLD: No | RS: No | Type: RX